FAERS Safety Report 9603885 (Version 2)
Quarter: 2013Q4

REPORT INFORMATION
  Report Type: Spontaneous
  Country: BR (occurrence: BR)
  Receive Date: 20131008
  Receipt Date: 20131212
  Transmission Date: 20140711
  Serious: Yes (Hospitalization)
  Sender: FDA-Public Use
  Company Number: BR-BIOGENIDEC-2013BI096252

PATIENT
  Age: 32 Year
  Sex: Female

DRUGS (4)
  1. AVONEX [Suspect]
     Indication: MULTIPLE SCLEROSIS
     Route: 030
     Dates: start: 20110919, end: 20130329
  2. AVONEX [Suspect]
     Indication: MULTIPLE SCLEROSIS
     Route: 030
     Dates: start: 20130405
  3. GINERA [Concomitant]
     Indication: CONTRACEPTION
     Route: 048
     Dates: start: 2006
  4. RETEMIC [Concomitant]
     Indication: MULTIPLE SCLEROSIS RELAPSE
     Dates: start: 20110330

REACTIONS (6)
  - Mouth haemorrhage [Recovered/Resolved]
  - Platelet count decreased [Recovered/Resolved]
  - Headache [Not Recovered/Not Resolved]
  - Antinuclear antibody positive [Unknown]
  - Coagulation test abnormal [Recovered/Resolved]
  - Injection site haemorrhage [Recovered/Resolved]
